FAERS Safety Report 7430153-2 (Version None)
Quarter: 2011Q2

REPORT INFORMATION
  Report Type: 
  Country: None (occurrence: None)
  Receive Date: 20110421
  Receipt Date: 20100521
  Transmission Date: 20111010
  Serious: No
  Sender: FDA-Public Use
  Company Number: US-ASTRAZENECA-2010SE23823

PATIENT

DRUGS (3)
  1. TOPAMAX [Suspect]
     Dosage: 2 TABLETS BID
     Route: 048
  2. TOPROL-XL [Suspect]
     Route: 048
  3. TOPROL-XL [Suspect]
     Dosage: 2 TABLETS BID
     Route: 048

REACTIONS (3)
  - LETHARGY [None]
  - SEDATION [None]
  - WRONG DRUG ADMINISTERED [None]
